FAERS Safety Report 9988925 (Version 2)
Quarter: 2014Q1

REPORT INFORMATION
  Report Type: Report from Study
  Country: US (occurrence: US)
  Receive Date: 20140310
  Receipt Date: 20140310
  Transmission Date: 20141002
  Serious: No
  Sender: FDA-Public Use
  Company Number: US-ABBVIE-13P-163-1099023-00

PATIENT
  Age: 35 Year
  Sex: Female

DRUGS (5)
  1. HUMIRA [Suspect]
     Indication: CROHN^S DISEASE
     Dates: start: 20130228, end: 20130621
  2. RITALIN [Concomitant]
     Indication: NARCOLEPSY
     Dosage: UP TO 6 TIMES A DAY
     Dates: start: 2009
  3. EFFEXOR [Concomitant]
     Indication: PANIC DISORDER
  4. SYNTHROID [Concomitant]
     Indication: HYPOTHYROIDISM
     Dates: start: 1998
  5. ASACOL [Concomitant]
     Indication: CROHN^S DISEASE

REACTIONS (7)
  - Feeling hot [Recovered/Resolved]
  - Local swelling [Recovered/Resolved]
  - Injection site rash [Recovering/Resolving]
  - Rash papular [Recovered/Resolved]
  - Rash papular [Recovered/Resolved]
  - Rash pruritic [Recovered/Resolved]
  - Urticaria [Recovered/Resolved]
